FAERS Safety Report 13157306 (Version 2)
Quarter: 2017Q1

REPORT INFORMATION
  Report Type: Spontaneous
  Country: JP (occurrence: JP)
  Receive Date: 20170127
  Receipt Date: 20170223
  Transmission Date: 20170428
  Serious: Yes (Life-Threatening)
  Sender: FDA-Public Use
  Company Number: JP-CONCORDIA PHARMACEUTICALS INC.-E2B_00007997

PATIENT
  Age: 35 Year
  Sex: Female

DRUGS (8)
  1. PLAQUENIL [Suspect]
     Active Substance: HYDROXYCHLOROQUINE SULFATE
     Route: 048
     Dates: end: 20160524
  2. CELLCEPT [Concomitant]
     Active Substance: MYCOPHENOLATE MOFETIL\MYCOPHENOLATE MOFETIL HYDROCHLORIDE
     Dates: start: 20150806
  3. PLAQUENIL [Suspect]
     Active Substance: HYDROXYCHLOROQUINE SULFATE
     Indication: RASH
     Route: 048
     Dates: start: 20160514
  4. GASTER [Concomitant]
     Active Substance: FAMOTIDINE
     Dates: start: 20030109
  5. PROGRAF [Concomitant]
     Active Substance: TACROLIMUS\TACROLIMUS ANHYDROUS
     Dates: start: 20150806
  6. ANPLAG [Concomitant]
     Active Substance: SARPOGRELATE
     Dates: start: 20031113
  7. BAYASPIRIN [Concomitant]
     Active Substance: ASPIRIN
     Dates: start: 20031205
  8. MUCOSTA [Concomitant]
     Active Substance: REBAMIPIDE
     Dates: start: 20090814

REACTIONS (3)
  - Pericarditis [Recovered/Resolved]
  - Pyrexia [Recovered/Resolved]
  - Chest pain [Recovered/Resolved]

NARRATIVE: CASE EVENT DATE: 20160519
